FAERS Safety Report 5255326-9 (Version None)
Quarter: 2007Q1

REPORT INFORMATION
  Report Type: 
  Country: None (occurrence: None)
  Receive Date: 20070305
  Receipt Date: 20070228
  Transmission Date: 20070707
  Serious: Yes (Hospitalization)
  Sender: FDA-Public Use
  Company Number: FR-GLAXOSMITHKLINE-B0460112A

PATIENT
  Age: 95 Year
  Sex: Female

DRUGS (1)
  1. AMOXICILLIN [Suspect]
     Indication: BRONCHITIS
     Route: 065
     Dates: start: 20070116, end: 20070117

REACTIONS (8)
  - DERMATITIS BULLOUS [None]
  - ERYTHEMA [None]
  - OEDEMA PERIPHERAL [None]
  - SKIN DISORDER [None]
  - SKIN EROSION [None]
  - SKIN INFECTION [None]
  - SKIN WARM [None]
  - WOUND SECRETION [None]
